FAERS Safety Report 16159181 (Version 1)
Quarter: 2019Q2

REPORT INFORMATION
  Report Type: Report from Study
  Country: US (occurrence: US)
  Receive Date: 20190404
  Receipt Date: 20190404
  Transmission Date: 20190711
  Serious: Yes (Other)
  Sender: FDA-Public Use
  Company Number: US-CELGENEUS-USA-20190310604

PATIENT
  Age: 55 Year
  Sex: Female
  Weight: 62.88 kg

DRUGS (1)
  1. VIDAZA [Suspect]
     Active Substance: AZACITIDINE
     Indication: ADJUVANT THERAPY
     Dosage: 300 MILLIGRAM
     Route: 048
     Dates: start: 20160601, end: 20160605

REACTIONS (1)
  - Cardiomyopathy acute [Recovered/Resolved]

NARRATIVE: CASE EVENT DATE: 20160626
